FAERS Safety Report 5748772-8 (Version None)
Quarter: 2008Q2

REPORT INFORMATION
  Report Type: 
  Country: None (occurrence: None)
  Receive Date: 20080522
  Receipt Date: 20080513
  Transmission Date: 20081010
  Serious: Yes (Death)
  Sender: FDA-Public Use
  Company Number: SPV1-2008-01102

PATIENT
  Sex: Female

DRUGS (1)
  1. FOSRENOL [Suspect]
     Indication: RENAL DISORDER
     Dosage: 500 MG, 9 TABLETS DAILY, ORAL
     Route: 048
     Dates: start: 20071031

REACTIONS (1)
  - DEATH [None]
